FAERS Safety Report 10201345 (Version 2)
Quarter: 2014Q2

REPORT INFORMATION
  Report Type: Spontaneous
  Country: BR (occurrence: BR)
  Receive Date: 20140528
  Receipt Date: 20140610
  Transmission Date: 20141212
  Serious: Yes (Death, Hospitalization)
  Sender: FDA-Public Use
  Company Number: BR-SA-2014SA066799

PATIENT
  Age: 80 Year
  Sex: Male

DRUGS (3)
  1. LANTUS SOLOSTAR [Suspect]
     Indication: TYPE 2 DIABETES MELLITUS
     Dosage: START DATE REPORTED AS 2013 (APPROXIMATELY 6 MONTHS AGO)
     Route: 058
     Dates: end: 2014
  2. APIDRA SOLOSTAR [Suspect]
     Indication: TYPE 2 DIABETES MELLITUS
     Dosage: START DATE REPORTED AS 2013 (APPROXIMATELY 6 MONTHS AGO)
     Route: 058
     Dates: end: 2014
  3. SOLOSTAR [Concomitant]
     Indication: TYPE 2 DIABETES MELLITUS
     Dates: start: 2013, end: 2014

REACTIONS (2)
  - Cardiac arrest [Fatal]
  - Coma [Not Recovered/Not Resolved]
